FAERS Safety Report 10215467 (Version 4)
Quarter: 2014Q2

REPORT INFORMATION
  Report Type: Report from Study
  Country: US (occurrence: US)
  Receive Date: 20140604
  Receipt Date: 20140630
  Transmission Date: 20141212
  Serious: Yes (Hospitalization, Other)
  Sender: FDA-Public Use
  Company Number: US-BIOGENIDEC-2014BI051467

PATIENT
  Age: 54 Year
  Sex: Female

DRUGS (4)
  1. AVONEX [Suspect]
     Indication: MULTIPLE SCLEROSIS
     Route: 030
     Dates: start: 19961001, end: 200211
  2. AVONEX [Suspect]
     Indication: MULTIPLE SCLEROSIS
     Route: 030
     Dates: start: 20021129, end: 2012
  3. AVONEX [Suspect]
     Indication: MULTIPLE SCLEROSIS
     Route: 030
     Dates: start: 2012, end: 201312
  4. BACLOFIN [Concomitant]
     Indication: PAIN

REACTIONS (5)
  - Hip arthroplasty [Recovered/Resolved]
  - Renal failure acute [Recovered/Resolved]
  - Arthropathy [Recovered/Resolved]
  - Back pain [Recovered/Resolved]
  - Dehydration [Recovered/Resolved]
